FAERS Safety Report 6320422-1 (Version None)
Quarter: 2009Q3

REPORT INFORMATION
  Report Type: 
  Country: None (occurrence: None)
  Receive Date: 20090822
  Receipt Date: 20081107
  Transmission Date: 20100115
  Serious: No
  Sender: FDA-Public Use
  Company Number: US-ABBOTT-08P-163-0486230-00

PATIENT
  Sex: Male

DRUGS (5)
  1. NIASPAN [Suspect]
     Indication: HYPERCHOLESTEROLAEMIA
     Route: 048
     Dates: start: 20081024
  2. ASPIRIN [Concomitant]
     Indication: DRUG USE FOR UNKNOWN INDICATION
  3. METOPROLOL SUCCINATE [Concomitant]
     Indication: DRUG USE FOR UNKNOWN INDICATION
  4. LAMOTRIGINE [Concomitant]
     Indication: DRUG USE FOR UNKNOWN INDICATION
  5. SERTRALINE [Concomitant]
     Indication: DRUG USE FOR UNKNOWN INDICATION

REACTIONS (3)
  - FLUSHING [None]
  - NAUSEA [None]
  - SKIN BURNING SENSATION [None]
